FAERS Safety Report 10234255 (Version 1)
Quarter: 2014Q2

REPORT INFORMATION
  Report Type: Spontaneous
  Country: US (occurrence: US)
  Receive Date: 20140612
  Receipt Date: 20140612
  Transmission Date: 20141212
  Serious: Yes (Other)
  Sender: FDA-Public Use
  Company Number: CHPA2014US007968

PATIENT
  Age: 65 Year
  Sex: Female

DRUGS (1)
  1. KERI ORIGINAL [Suspect]
     Dosage: UNK
     Route: 061

REACTIONS (2)
  - Blister [Unknown]
  - Pruritus [Unknown]
